FAERS Safety Report 5841255-6 (Version None)
Quarter: 2008Q3

REPORT INFORMATION
  Report Type: 
  Country: None (occurrence: None)
  Receive Date: 20080812
  Receipt Date: 20080805
  Transmission Date: 20090109
  Serious: Yes (Other)
  Sender: FDA-Public Use
  Company Number: PT-BRISTOL-MYERS SQUIBB COMPANY-14296743

PATIENT
  Sex: Female

DRUGS (1)
  1. METFORMIN HCL [Suspect]
     Dosage: METFORMINE MERCK 1000 MG (COATED TABLET).
     Route: 048
     Dates: start: 20080709, end: 20080723

REACTIONS (2)
  - RENAL FAILURE [None]
  - VOMITING [None]
